FAERS Safety Report 6692120-6 (Version None)
Quarter: 2010Q2

REPORT INFORMATION
  Report Type: 
  Country: None (occurrence: None)
  Receive Date: 20100422
  Receipt Date: 20090803
  Transmission Date: 20101027
  Serious: No
  Sender: FDA-Public Use
  Company Number: US-ASTRAZENECA-2009UW18302

PATIENT
  Age: 30706 Day
  Sex: Female
  Weight: 43.5 kg

DRUGS (2)
  1. METOPROLOL SUCCINATE [Suspect]
     Route: 048
     Dates: start: 20090501
  2. LIPITOR [Concomitant]

REACTIONS (5)
  - BLOOD PRESSURE DECREASED [None]
  - FATIGUE [None]
  - FEELING ABNORMAL [None]
  - HEART RATE INCREASED [None]
  - TREMOR [None]
